FAERS Safety Report 16502705 (Version 1)
Quarter: 2019Q3

REPORT INFORMATION
  Report Type: Spontaneous
  Country: JP (occurrence: JP)
  Receive Date: 20190701
  Receipt Date: 20190701
  Transmission Date: 20191004
  Serious: Yes (Death, Hospitalization)
  Sender: FDA-Public Use
  Company Number: PHHY2019JP149966

PATIENT
  Age: 76 Year
  Sex: Female

DRUGS (2)
  1. CYCLOPHOSPHAMIDE. [Suspect]
     Active Substance: CYCLOPHOSPHAMIDE
     Indication: HEPATOCELLULAR CARCINOMA
     Dosage: 500 MG, QD
     Route: 065
  2. METHYLPREDNISOLONE. [Suspect]
     Active Substance: METHYLPREDNISOLONE
     Indication: HEPATOCELLULAR CARCINOMA
     Dosage: 1000 MG, QD
     Route: 042

REACTIONS (4)
  - Respiratory disorder [Not Recovered/Not Resolved]
  - Product use in unapproved indication [Unknown]
  - Concomitant disease aggravated [Not Recovered/Not Resolved]
  - Respiratory failure [Fatal]
